FAERS Safety Report 7041004-2 (Version None)
Quarter: 2010Q4

REPORT INFORMATION
  Report Type: 
  Country: None (occurrence: None)
  Receive Date: 20101013
  Receipt Date: 20100930
  Transmission Date: 20110411
  Serious: Yes (Hospitalization, Other)
  Sender: FDA-Public Use
  Company Number: PHHY2010BR64814

PATIENT
  Age: 16 Year
  Sex: Male

DRUGS (2)
  1. RITALIN [Suspect]
     Indication: ATTENTION DEFICIT/HYPERACTIVITY DISORDER
     Dosage: 2 TABLETS DAILY
     Route: 048
     Dates: end: 20100928
  2. ATENSINA [Concomitant]
     Dosage: 0.100 MG
     Route: 048

REACTIONS (13)
  - BLOOD PRESSURE INCREASED [None]
  - BRADYCARDIA [None]
  - COMA SCALE ABNORMAL [None]
  - CONVULSION [None]
  - DIABETIC KETOACIDOSIS [None]
  - DYSPNOEA [None]
  - EMOTIONAL DISORDER [None]
  - HYPERGLYCAEMIA [None]
  - HYPERHIDROSIS [None]
  - HYPOTHERMIA [None]
  - MIOSIS [None]
  - PANCREATITIS [None]
  - SOPOR [None]
